FAERS Safety Report 9011461 (Version 1)
Quarter: 2013Q1

REPORT INFORMATION
  Report Type: Spontaneous
  Country: US (occurrence: US)
  Receive Date: 20130111
  Receipt Date: 20130111
  Transmission Date: 20140127
  Serious: Yes (Hospitalization, Other)
  Sender: FDA-Public Use
  Company Number: US-009507513-1301USA004280

PATIENT
  Age: 71 Year
  Sex: Male

DRUGS (2)
  1. SINGULAIR [Suspect]
     Dosage: UNK MG, UNK
  2. ALLEGRA [Suspect]
     Route: 048

REACTIONS (4)
  - Diverticulitis [Unknown]
  - Rhinorrhoea [Unknown]
  - Diverticulitis [Unknown]
  - Cough [Unknown]
